FAERS Safety Report 15506569 (Version 3)
Quarter: 2018Q4

REPORT INFORMATION
  Report Type: Report from Study
  Country: US (occurrence: US)
  Receive Date: 20181016
  Receipt Date: 20181130
  Transmission Date: 20190205
  Serious: Yes (Hospitalization, Other)
  Sender: FDA-Public Use
  Company Number: US-TESARO-2018-TSO1256-US

PATIENT
  Sex: Female
  Weight: 49.39 kg

DRUGS (2)
  1. ZEJULA [Suspect]
     Active Substance: NIRAPARIB
     Dosage: 100 MG, QD
     Route: 048
     Dates: start: 201810
  2. ZEJULA [Suspect]
     Active Substance: NIRAPARIB
     Indication: OVARIAN CANCER
     Dosage: 200 MG, QD
     Route: 048
     Dates: start: 201707

REACTIONS (8)
  - Lymphoedema [Unknown]
  - Drug ineffective [Unknown]
  - Cellulitis [Recovered/Resolved]
  - Bacteraemia [Recovering/Resolving]
  - Full blood count decreased [Recovered/Resolved]
  - Blood creatine abnormal [Unknown]
  - Drug intolerance [Unknown]
  - Weight decreased [Unknown]
